FAERS Safety Report 13176323 (Version 1)
Quarter: 2017Q1

REPORT INFORMATION
  Report Type: Spontaneous
  Country: US (occurrence: US)
  Receive Date: 20170201
  Receipt Date: 20170201
  Transmission Date: 20170428
  Serious: Yes (Other)
  Sender: FDA-Public Use
  Company Number: US-BIOMARINAP-US-2017-112496

PATIENT
  Sex: Female
  Weight: 16 kg

DRUGS (3)
  1. NAGLAZYME [Suspect]
     Active Substance: GALSULFASE
     Indication: MUCOPOLYSACCHARIDOSIS VI
     Dosage: 20 MG, QW
     Route: 042
     Dates: start: 20151002
  2. LETIRIZINE [Concomitant]
     Active Substance: LEVOCETIRIZINE
     Indication: PREMEDICATION
     Dosage: 5 MG, UNK
     Route: 048
     Dates: start: 20170114
  3. IBUPROFEN. [Concomitant]
     Active Substance: IBUPROFEN
     Indication: PREMEDICATION
     Dosage: 190 MG, UNK
     Route: 048
     Dates: start: 20170114

REACTIONS (3)
  - Heart rate increased [Recovered/Resolved]
  - Oxygen saturation decreased [Recovered/Resolved]
  - Spinal cord compression [Unknown]
